FAERS Safety Report 9685719 (Version 1)
Quarter: 2013Q4

REPORT INFORMATION
  Report Type: Spontaneous
  Country: US (occurrence: US)
  Receive Date: 20131113
  Receipt Date: 20131113
  Transmission Date: 20140711
  Serious: No
  Sender: FDA-Public Use
  Company Number: US-009507513-1311USA004342

PATIENT
  Age: 30 Year
  Sex: Female

DRUGS (1)
  1. METHYLPREDNISOLONE SODIUM SUCCINATE [Suspect]
     Indication: GRANULOMATOSIS WITH POLYANGIITIS
     Dosage: UNK, BIW
     Route: 042

REACTIONS (1)
  - Hypercorticoidism [Unknown]
